FAERS Safety Report 23601263 (Version 1)
Quarter: 2024Q1

REPORT INFORMATION
  Report Type: Report from Study
  Country: US (occurrence: US)
  Receive Date: 20240306
  Receipt Date: 20240306
  Transmission Date: 20240409
  Serious: No
  Sender: FDA-Public Use
  Company Number: US-BIOVITRUM-2024-US-002586

PATIENT
  Age: 37 Year
  Sex: Male

DRUGS (1)
  1. KINERET [Suspect]
     Active Substance: ANAKINRA
     Indication: Immune system disorder
     Dosage: QOD
     Route: 058
     Dates: start: 20230809

REACTIONS (5)
  - Intentional product misuse [Not Recovered/Not Resolved]
  - Pruritus [Recovered/Resolved]
  - Product dose omission in error [Unknown]
  - Skin discolouration [Unknown]
  - Product use issue [Unknown]

NARRATIVE: CASE EVENT DATE: 20230809
